FAERS Safety Report 20969676 (Version 1)
Quarter: 2022Q2

REPORT INFORMATION
  Report Type: Spontaneous
  Country: None (occurrence: US)
  Receive Date: 20220616
  Receipt Date: 20220616
  Transmission Date: 20220721
  Serious: No
  Sender: FDA-Public Use
  Company Number: US-GREER Laboratories, Inc.-2129997

PATIENT
  Age: 54 Year
  Sex: Female

DRUGS (13)
  1. ALLERGENIC EXTRACT- ORCHARD GRASS DACTYLIS GLOMERATA [Suspect]
     Active Substance: DACTYLIS GLOMERATA POLLEN
     Indication: Rhinitis allergic
     Route: 058
  2. ALLERGENIC EXTRACT- REDTOP AGROSTIS ALBA [Suspect]
     Active Substance: AGROSTIS GIGANTEA POLLEN
     Route: 058
  3. STANDARDIZED TIMOTHY GRASS POLLEN [Suspect]
     Active Substance: PHLEUM PRATENSE POLLEN
     Route: 058
  4. STANDARDIZED SWEET VERNAL GRASS POLLEN [Suspect]
     Active Substance: ANTHOXANTHUM ODORATUM POLLEN
     Route: 058
  5. ALBUMIN HUMAN [Suspect]
     Active Substance: ALBUMIN HUMAN
     Route: 058
  6. POLLENS - WEEDS AND GARDEN PLANTS, SHORT RAGWEED, AMBROSIA ARTEMISIIFO [Suspect]
     Active Substance: AMBROSIA ARTEMISIIFOLIA POLLEN
     Route: 058
  7. POLLENS - WEEDS AND GARDEN PLANTS, SAGEBRUSH, MUGWORT ARTEMISIA VULGAR [Suspect]
     Active Substance: ARTEMISIA VULGARIS POLLEN
     Route: 058
  8. POLLENS - WEEDS AND GARDEN PLANTS, COCKLEBUR XANTHIUM STRUMARIUM [Suspect]
     Active Substance: XANTHIUM STRUMARIUM POLLEN
     Route: 058
  9. POLLENS - WEEDS AND GARDEN PLANTS, LAMBS QUARTERS CHENOPODIUM ALBUM [Suspect]
     Active Substance: CHENOPODIUM ALBUM POLLEN
     Route: 058
  10. FLOVENT HFA [Concomitant]
     Active Substance: FLUTICASONE PROPIONATE
     Route: 055
  11. SINGULAIR [Concomitant]
     Active Substance: MONTELUKAST SODIUM
     Route: 048
  12. FLONASE [Concomitant]
     Active Substance: FLUTICASONE PROPIONATE
     Route: 045
  13. PRILOSEC [Concomitant]
     Active Substance: OMEPRAZOLE MAGNESIUM
     Route: 048

REACTIONS (5)
  - Injection site discolouration [Not Recovered/Not Resolved]
  - Injection site rash [Not Recovered/Not Resolved]
  - Injection site pruritus [Not Recovered/Not Resolved]
  - Fixed eruption [Not Recovered/Not Resolved]
  - Skin reaction [Not Recovered/Not Resolved]
